FAERS Safety Report 4623081-9 (Version None)
Quarter: 2005Q1

REPORT INFORMATION
  Report Type: 
  Country: None (occurrence: None)
  Receive Date: 20050328
  Receipt Date: 20050328
  Transmission Date: 20050727
  Serious: Yes (Hospitalization)
  Sender: FDA-Public Use
  Company Number: None

PATIENT
  Age: 75 Year
  Sex: Male

DRUGS (3)
  1. WARFARIN [Suspect]
     Indication: DEEP VEIN THROMBOSIS
     Dosage: 2.5 MG PO QHS
     Route: 048
     Dates: start: 20041228, end: 20050110
  2. BICALUTAMIDE [Concomitant]
  3. FENTANYL TRANSD PATCH [Concomitant]

REACTIONS (5)
  - CATHETER RELATED COMPLICATION [None]
  - HAEMATOCRIT DECREASED [None]
  - HAEMATURIA [None]
  - IATROGENIC INJURY [None]
  - INTERNATIONAL NORMALISED RATIO DECREASED [None]
